FAERS Safety Report 9012543 (Version 2)
Quarter: 2013Q1

REPORT INFORMATION
  Report Type: Spontaneous
  Country: JP (occurrence: JP)
  Receive Date: 20130114
  Receipt Date: 20130329
  Transmission Date: 20140127
  Serious: Yes (Hospitalization)
  Sender: FDA-Public Use
  Company Number: JP-B.I. PHARMACEUTICALS,INC./RIDGEFIELD-2013-BI-00835NB

PATIENT
  Age: 9 Decade
  Sex: Female

DRUGS (1)
  1. MIRAPEX LA [Suspect]
     Indication: RESTLESS LEGS SYNDROME
     Route: 048

REACTIONS (3)
  - Cataract operation [Unknown]
  - Pain [Unknown]
  - Off label use [Unknown]
